FAERS Safety Report 8265491-7 (Version None)
Quarter: 2012Q2

REPORT INFORMATION
  Report Type: 
  Country: None (occurrence: None)
  Receive Date: 20120406
  Receipt Date: 20120402
  Transmission Date: 20120825
  Serious: Yes (Other)
  Sender: FDA-Public Use
  Company Number: US-PFIZER INC-2012066530

PATIENT
  Sex: Female
  Weight: 111 kg

DRUGS (6)
  1. ASPIRIN [Suspect]
     Indication: ARTHRALGIA
     Dosage: 1000 MG, AS NEEDED
     Dates: start: 20090101
  2. LIPITOR [Suspect]
     Indication: BLOOD TRIGLYCERIDES INCREASED
     Dosage: 10 MG, DAILY
     Dates: end: 20120311
  3. TYLENOL [Suspect]
     Indication: ARTHRALGIA
     Dosage: UNK, AS NEEDED
     Dates: start: 20090101, end: 20110101
  4. ASPIRIN [Suspect]
     Indication: BACK PAIN
  5. NAPROXEN (ALEVE) [Suspect]
     Indication: ARTHRALGIA
     Dosage: UNK, AS NEEDED
     Dates: start: 20090101, end: 20110101
  6. LISINOPRIL [Concomitant]
     Indication: HYPERTENSION
     Dosage: UNK
     Dates: start: 20080101

REACTIONS (13)
  - ARTHRALGIA [None]
  - WEIGHT INCREASED [None]
  - ARTHROPATHY [None]
  - PRURITUS [None]
  - DRUG INEFFECTIVE [None]
  - DYSSTASIA [None]
  - ABASIA [None]
  - ALLERGY TO METALS [None]
  - BACK DISORDER [None]
  - HYPERHIDROSIS [None]
  - BACK PAIN [None]
  - MUSCULOSKELETAL DISORDER [None]
  - PALPITATIONS [None]
